FAERS Safety Report 20771101 (Version 7)
Quarter: 2022Q2

REPORT INFORMATION
  Report Type: Report from Study
  Country: AU (occurrence: AU)
  Receive Date: 20220429
  Receipt Date: 20220609
  Transmission Date: 20220721
  Serious: Yes (Hospitalization, Other)
  Sender: FDA-Public Use
  Company Number: AU-BRISTOL-MYERS SQUIBB COMPANY-2022-027176

PATIENT
  Age: 77 Year
  Sex: Male

DRUGS (24)
  1. BEMPEGALDESLEUKIN [Suspect]
     Active Substance: BEMPEGALDESLEUKIN
     Indication: Malignant melanoma
     Dosage: 0.006 MG/KG (0.45 MG)
     Route: 042
     Dates: start: 20220228, end: 20220228
  2. ACETAMINOPHEN [Concomitant]
     Active Substance: ACETAMINOPHEN
     Indication: Product used for unknown indication
     Dosage: PRN
     Route: 048
     Dates: start: 20220301
  3. GLICLAZIDE [Concomitant]
     Active Substance: GLICLAZIDE
     Indication: Product used for unknown indication
     Route: 048
     Dates: start: 20220315, end: 20220328
  4. GLICLAZIDE [Concomitant]
     Active Substance: GLICLAZIDE
     Route: 048
     Dates: start: 20220329, end: 20220331
  5. GLICLAZIDE [Concomitant]
     Active Substance: GLICLAZIDE
     Route: 048
     Dates: start: 20220401, end: 20220404
  6. DULAGLUTIDE [Concomitant]
     Active Substance: DULAGLUTIDE
     Indication: Product used for unknown indication
     Route: 058
     Dates: start: 20211201
  7. GAVISCO [Concomitant]
     Indication: Product used for unknown indication
     Dosage: 1 SACHET, PRN
     Route: 048
     Dates: start: 20220307, end: 20220411
  8. GAVISCO [Concomitant]
     Route: 048
     Dates: start: 20220412, end: 20220421
  9. INSULIN NOS [Concomitant]
     Active Substance: INSULIN NOS
     Indication: Product used for unknown indication
     Dosage: 1 DF=10 UNIT
     Route: 058
     Dates: start: 20220405, end: 20220407
  10. INSULIN NOS [Concomitant]
     Active Substance: INSULIN NOS
     Dosage: 1 DF=14 UNIT
     Route: 058
     Dates: start: 20220408, end: 20220414
  11. INSULIN NOS [Concomitant]
     Active Substance: INSULIN NOS
     Dosage: 1 DF= 16 UNIT
     Route: 058
     Dates: start: 20220415, end: 20220417
  12. INSULIN NOS [Concomitant]
     Active Substance: INSULIN NOS
     Dosage: 1 DF=018 UNIT
     Route: 058
     Dates: start: 20220418, end: 20220419
  13. INSULIN NOS [Concomitant]
     Active Substance: INSULIN NOS
     Dosage: 16 UNIT
     Route: 058
     Dates: start: 20220420
  14. METFORMIN [Concomitant]
     Active Substance: METFORMIN HYDROCHLORIDE
     Indication: Product used for unknown indication
     Route: 048
     Dates: start: 20220315, end: 20220405
  15. METFORMIN [Concomitant]
     Active Substance: METFORMIN HYDROCHLORIDE
     Route: 048
     Dates: start: 20220406
  16. PANTOPRAZOLE [Concomitant]
     Active Substance: PANTOPRAZOLE
     Indication: Product used for unknown indication
     Route: 048
     Dates: start: 20220407, end: 20220408
  17. PANTOPRAZOLE [Concomitant]
     Active Substance: PANTOPRAZOLE
     Route: 048
     Dates: start: 20220409, end: 20220421
  18. CRESTOR [Concomitant]
     Active Substance: ROSUVASTATIN CALCIUM
     Indication: Product used for unknown indication
     Route: 048
     Dates: start: 20100101
  19. NUTREN 1.0 [Concomitant]
     Indication: Supplementation therapy
     Dosage: 1 DF=T}1 BOTTLE, PRN
     Route: 048
     Dates: start: 20220413
  20. VITAMIN D [Concomitant]
     Active Substance: VITAMIN D NOS
     Indication: Supplementation therapy
     Route: 048
     Dates: start: 20220301
  21. PREDNISOLONE [Concomitant]
     Active Substance: PREDNISOLONE
     Indication: Product used for unknown indication
     Route: 048
     Dates: start: 20220415, end: 20220421
  22. CHLORAMPHENICOL [Concomitant]
     Active Substance: CHLORAMPHENICOL
     Indication: Product used for unknown indication
     Dosage: 2 BOTTLE, PRN
     Route: 048
     Dates: start: 20220303
  23. SUSTAIN [Concomitant]
     Indication: Product used for unknown indication
     Dosage: 1 BOTTLE, PRN
     Route: 048
     Dates: start: 20220307
  24. AVEENO [Concomitant]
     Active Substance: DIMETHICONE\HOMOSALATE\OCTINOXATE\OCTISALATE\TITANIUM DIOXIDE
     Indication: Product used for unknown indication
     Dosage: 1 APPLICATION, BID
     Route: 048
     Dates: start: 20211201

REACTIONS (1)
  - Myocarditis [Not Recovered/Not Resolved]

NARRATIVE: CASE EVENT DATE: 20220421
